FAERS Safety Report 9083778 (Version 1)
Quarter: 2013Q1

REPORT INFORMATION
  Report Type: Spontaneous
  Country: JP (occurrence: JP)
  Receive Date: 20130218
  Receipt Date: 20130218
  Transmission Date: 20140127
  Serious: Yes (Death)
  Sender: FDA-Public Use
  Company Number: PHHY2012JP079928

PATIENT
  Age: 60 Year
  Sex: Male
  Weight: 60 kg

DRUGS (3)
  1. NEORAL [Suspect]
     Indication: COLLAGEN DISORDER
     Dosage: 100 MG DAILY
     Route: 048
     Dates: start: 201208, end: 20120906
  2. BAKTAR [Concomitant]
  3. PREDONINE [Concomitant]

REACTIONS (2)
  - Thrombotic thrombocytopenic purpura [Fatal]
  - Platelet count decreased [Fatal]
